FAERS Safety Report 6161454-6 (Version None)
Quarter: 2009Q2

REPORT INFORMATION
  Report Type: 
  Country: None (occurrence: None)
  Receive Date: 20090421
  Receipt Date: 20090414
  Transmission Date: 20091009
  Serious: Yes (Congenital Anomaly)
  Sender: FDA-Public Use
  Company Number: CS-ASTRAZENECA-2009AC01051

PATIENT
  Age: 0 Week

DRUGS (1)
  1. ATENOLOL [Suspect]

REACTIONS (1)
  - CONGENITAL ANOMALY [None]
